FAERS Safety Report 11026328 (Version 1)
Quarter: 2015Q2

REPORT INFORMATION
  Report Type: Spontaneous
  Country: FR (occurrence: FR)
  Receive Date: 20150414
  Receipt Date: 20150414
  Transmission Date: 20150821
  Serious: Yes (Hospitalization)
  Sender: FDA-Public Use
  Company Number: FR-SA-2015SA042780

PATIENT
  Age: 64 Year
  Sex: Female
  Weight: 54.3 kg

DRUGS (19)
  1. TRIFLUCAN [Concomitant]
     Active Substance: FLUCONAZOLE
     Route: 048
     Dates: start: 20150109, end: 20150120
  2. FUNGIZONE [Concomitant]
     Active Substance: AMPHOTERICIN B
     Route: 048
  3. ATARAX [Concomitant]
     Active Substance: HYDROXYZINE\HYDROXYZINE HYDROCHLORIDE
     Dosage: STRENGTH: 25 MG
     Dates: start: 20150103
  4. OFLOCET [Suspect]
     Active Substance: OFLOXACIN
     Dosage: OFLOCET DIVISIBLE TABLETS
     Route: 048
     Dates: start: 20150112, end: 20150116
  5. ROVALCYTE [Concomitant]
     Active Substance: VALGANCICLOVIR HYDROCHLORIDE
     Route: 048
  6. DEPAKINE CHRONO [Concomitant]
     Active Substance: VALPROATE SODIUM
     Dosage: FILM-COATED DIVISIBLE TABLET EXTENDED RELEASE
  7. SOLUPRED [Concomitant]
     Active Substance: PREDNISOLONE
     Route: 048
     Dates: start: 20150109, end: 20150120
  8. CACIT [Concomitant]
     Active Substance: CALCIUM\VITAMIN D
     Dosage: STRENGTH: 1000 MG
     Route: 048
     Dates: start: 20150109
  9. ARANESP [Concomitant]
     Active Substance: DARBEPOETIN ALFA
     Indication: ANAEMIA
     Route: 042
     Dates: start: 20150109
  10. PENTACARINAT [Concomitant]
     Active Substance: PENTAMIDINE ISETHIONATE
     Dosage: 300 MG POWDER AEROSOL AND FOR PARENTERAL USE, 1 DF, 1 IN 3 WEEK
  11. LASILIX SPECIAL [Suspect]
     Active Substance: FUROSEMIDE
     Route: 065
  12. SPECIAFOLDINE [Concomitant]
     Active Substance: FOLIC ACID
     Indication: HYPOVITAMINOSIS
     Dosage: ROUTE: ENC
     Dates: start: 20150109
  13. KARDEGIC [Concomitant]
     Active Substance: ASPIRIN LYSINE
     Dosage: 75 MG POWDER FOR ORAL SOLUTION IN DOSE SACHET
     Dates: start: 20150103
  14. LEVOTHYROX [Concomitant]
     Active Substance: LEVOTHYROXINE
  15. UN-ALFA [Concomitant]
     Dosage: 0.5 MICROGRAM
  16. INEXIUM [Concomitant]
     Active Substance: ESOMEPRAZOLE
     Dates: start: 20150110
  17. GIFRER [Concomitant]
  18. NEORAL [Suspect]
     Active Substance: CYCLOSPORINE
     Route: 048
     Dates: start: 20150109
  19. GYNOPURA [Concomitant]

REACTIONS (2)
  - Renal tubular necrosis [Not Recovered/Not Resolved]
  - Accidental overdose [Unknown]

NARRATIVE: CASE EVENT DATE: 20150109
